FAERS Safety Report 7995697-3 (Version None)
Quarter: 2011Q4

REPORT INFORMATION
  Report Type: 
  Country: None (occurrence: None)
  Receive Date: 20111220
  Receipt Date: 20111206
  Transmission Date: 20120403
  Serious: Yes (Other)
  Sender: FDA-Public Use
  Company Number: TW-ROCHE-1023341

PATIENT

DRUGS (4)
  1. ALTEPLASE [Suspect]
     Indication: RETINAL HAEMORRHAGE
     Route: 050
  2. PERFLUTREN [Suspect]
     Indication: RETINAL HAEMORRHAGE
  3. ANTICOAGULANT NOS [Suspect]
     Indication: ANTICOAGULANT THERAPY
  4. BETADINE [Concomitant]

REACTIONS (1)
  - VITREOUS HAEMORRHAGE [None]
